FAERS Safety Report 10199789 (Version 1)
Quarter: 2014Q2

REPORT INFORMATION
  Report Type: Spontaneous
  Country: US (occurrence: US)
  Receive Date: 20140527
  Receipt Date: 20140527
  Transmission Date: 20141212
  Serious: No
  Sender: FDA-Public Use
  Company Number: US-NOVEN-14US008943

PATIENT
  Age: 21 Year
  Sex: Female
  Weight: 67.12 kg

DRUGS (4)
  1. DAYTRANA [Suspect]
     Indication: ATTENTION DEFICIT/HYPERACTIVITY DISORDER
     Dosage: 20 MG, QD
     Route: 062
     Dates: start: 20131214
  2. PROPANOLOL                         /00030001/ [Concomitant]
     Indication: ANXIETY
     Dosage: 40 MG, QD
     Route: 048
  3. KARIVA [Concomitant]
     Indication: ORAL CONTRACEPTION
     Dosage: UNK
     Route: 048
  4. AMITRIPTYLINE [Concomitant]
     Indication: INSOMNIA
     Dosage: 10 MG, UNK
     Route: 048
     Dates: start: 20130214

REACTIONS (6)
  - Application site erythema [Not Recovered/Not Resolved]
  - Application site pruritus [Recovered/Resolved]
  - Application site dryness [Not Recovered/Not Resolved]
  - Off label use [Not Recovered/Not Resolved]
  - Labelled drug-disease interaction medication error [Not Recovered/Not Resolved]
  - Application site discolouration [Not Recovered/Not Resolved]
